FAERS Safety Report 9236484 (Version 1)
Quarter: 2013Q2

REPORT INFORMATION
  Report Type: Spontaneous
  Country: US (occurrence: US)
  Receive Date: 20130417
  Receipt Date: 20130417
  Transmission Date: 20140414
  Serious: Yes (Hospitalization, Other)
  Sender: FDA-Public Use
  Company Number: US-TEVA-397750USA

PATIENT
  Age: 31 Year
  Sex: Female
  Weight: 67.19 kg

DRUGS (1)
  1. PARAGARD 380A [Suspect]
     Indication: CONTRACEPTION
     Route: 015
     Dates: start: 201109, end: 201204

REACTIONS (4)
  - Abdominal hernia [Recovered/Resolved]
  - Uterine perforation [Recovered/Resolved]
  - Device expulsion [Recovered/Resolved]
  - Gastroenteritis viral [Recovered/Resolved]
